FAERS Safety Report 10420146 (Version 1)
Quarter: 2014Q3

REPORT INFORMATION
  Report Type: Report from Study
  Country: US (occurrence: None)
  Receive Date: 20140804
  Receipt Date: 20140804
  Transmission Date: 20150326
  Serious: Yes (Hospitalization)
  Sender: FDA-Public Use
  Company Number: 2012US006329

PATIENT
  Age: 48 Year
  Sex: Male
  Weight: 86.2 kg

DRUGS (14)
  1. CRESTOR [Concomitant]
     Active Substance: ROSUVASTATIN CALCIUM
  2. SPIRIVA [Concomitant]
     Active Substance: TIOTROPIUM BROMIDE MONOHYDRATE
  3. GLASSIA [Suspect]
     Active Substance: .ALPHA.1-PROTEINASE INHIBITOR HUMAN
     Indication: ALPHA-1 ANTI-TRYPSIN DEFICIENCY
     Route: 042
     Dates: start: 201108, end: 20121207
  4. LOVAZA (OMEGA-3-ACID ETHYL ESTER) [Concomitant]
  5. LEXAPRO [Concomitant]
     Active Substance: ESCITALOPRAM OXALATE
  6. TRAMADOL (TRAMADOL) [Concomitant]
     Active Substance: TRAMADOL
  7. INDOCIN (INDOMETHACIN) [Concomitant]
  8. DIOVAN [Concomitant]
     Active Substance: VALSARTAN
  9. SYNTHROID [Concomitant]
     Active Substance: LEVOTHYROXINE SODIUM
  10. PROAIR HFA [Concomitant]
     Active Substance: ALBUTEROL SULFATE
  11. NASONEX [Concomitant]
     Active Substance: MOMETASONE FUROATE
  12. ADVAIR (FLUTICASONE PROPIONATE, SALMETEROL XINAFOATE [Concomitant]
  13. SINGULAIR (MONTELUKAST SODIUM) [Concomitant]
  14. ASPIRIN (ACETYLSALICYLIC ACID) [Concomitant]
     Active Substance: ASPIRIN

REACTIONS (7)
  - Pancreatitis [None]
  - Gout [None]
  - Renal disorder [None]
  - Arthralgia [None]
  - Forced expiratory volume decreased [None]
  - Inguinal hernia [None]
  - Cellulitis [None]

NARRATIVE: CASE EVENT DATE: 201108
